FAERS Safety Report 8437777-4 (Version None)
Quarter: 2012Q2

REPORT INFORMATION
  Report Type: 
  Country: None (occurrence: None)
  Receive Date: 20120614
  Receipt Date: 20120504
  Transmission Date: 20120825
  Serious: No
  Sender: FDA-Public Use
  Company Number: US-AMGEN-USASP2012018479

PATIENT
  Age: 84 Year
  Sex: Female
  Weight: 84.354 kg

DRUGS (7)
  1. CLINDAMYCIN [Concomitant]
     Dosage: 150 MG, QID
     Route: 048
     Dates: start: 20120313, end: 20120320
  2. VITAMIN D [Concomitant]
     Dosage: 2000 IU, BID
  3. CLINDAMYCIN [Suspect]
     Indication: TOOTH INFECTION
     Dosage: 150 MG, QID
     Route: 048
     Dates: start: 20120313, end: 20120320
  4. CALCIUM [Concomitant]
     Dosage: 600 MG, BID
  5. PROLIA [Suspect]
     Indication: OSTEOPOROSIS POSTMENOPAUSAL
     Dosage: 60 MG, Q6MO
     Route: 058
     Dates: start: 20120123
  6. SPIRIVA [Concomitant]
  7. PAXIL [Concomitant]
     Dosage: 20 MG, QD

REACTIONS (6)
  - DRUG ERUPTION [None]
  - RASH MACULAR [None]
  - ERYTHEMA [None]
  - RASH PRURITIC [None]
  - TOOTH INFECTION [None]
  - PAIN IN JAW [None]
